FAERS Safety Report 11059823 (Version 2)
Quarter: 2015Q2

REPORT INFORMATION
  Report Type: Spontaneous
  Country: JP (occurrence: JP)
  Receive Date: 20150423
  Receipt Date: 20150510
  Transmission Date: 20150821
  Serious: Yes (Death, Hospitalization, Other)
  Sender: FDA-Public Use
  Company Number: JP-PFIZER INC-2015138383

PATIENT
  Age: 40 Year
  Sex: Female

DRUGS (7)
  1. IRINOTECAN HCL [Suspect]
     Active Substance: IRINOTECAN HYDROCHLORIDE
     Dosage: 160 MG/M2, 3 CYCLES
     Route: 065
  2. CISPLATIN. [Concomitant]
     Active Substance: CISPLATIN
     Indication: CERVIX CARCINOMA STAGE II
     Dosage: 70 MG/M2, 6 CYCLES
  3. CARBOPLATIN. [Concomitant]
     Active Substance: CARBOPLATIN
     Indication: CERVIX CARCINOMA
     Dosage: AUC AT 5 MG/ML 7 CYCLES
  4. NEDAPLATIN [Concomitant]
     Active Substance: NEDAPLATIN
     Indication: CERVIX CARCINOMA STAGE II
     Dosage: 80 MG/M2, 1 CYCLE
  5. DOCETAXEL. [Concomitant]
     Active Substance: DOCETAXEL
     Indication: CERVIX CARCINOMA
     Dosage: 75 MG/M2, 7 CYCLES
  6. IRINOTECAN HCL [Suspect]
     Active Substance: IRINOTECAN HYDROCHLORIDE
     Indication: CERVIX CARCINOMA STAGE II
     Dosage: 160 MG/M2, 1 CYCLE
  7. NEDAPLATIN [Concomitant]
     Active Substance: NEDAPLATIN
     Dosage: 80 MG/M2, 3 CYCLES
     Route: 065

REACTIONS (2)
  - Second primary malignancy [Fatal]
  - Acute myeloid leukaemia [Fatal]
